FAERS Safety Report 6125207-7 (Version None)
Quarter: 2009Q1

REPORT INFORMATION
  Report Type: 
  Country: None (occurrence: None)
  Receive Date: 20090318
  Receipt Date: 20090302
  Transmission Date: 20090719
  Serious: Yes (Other)
  Sender: FDA-Public Use
  Company Number: 8043866

PATIENT
  Age: 11 Year
  Sex: Male
  Weight: 47 kg

DRUGS (3)
  1. EQUASYM [Suspect]
     Dosage: 5 MG PO
     Route: 048
  2. CONCERTA [Suspect]
     Dosage: 36 MG PO
     Route: 048
  3. RISPERDAL [Suspect]
     Dosage: PO
     Route: 048

REACTIONS (1)
  - ACCIDENTAL EXPOSURE [None]
